FAERS Safety Report 12471247 (Version 2)
Quarter: 2016Q2

REPORT INFORMATION
  Report Type: Report from Study
  Country: DE (occurrence: DE)
  Receive Date: 20160616
  Receipt Date: 20160617
  Transmission Date: 20160815
  Serious: Yes (Life-Threatening, Hospitalization, Other)
  Sender: FDA-Public Use
  Company Number: DE-B.I. PHARMACEUTICALS,INC./RIDGEFIELD-2016-BI-38301DE

PATIENT
  Age: 57 Year
  Sex: Female
  Weight: 51.9 kg

DRUGS (3)
  1. DOCETAXEL. [Suspect]
     Active Substance: DOCETAXEL
     Indication: LUNG ADENOCARCINOMA
     Dosage: FORMULATION: LIQUID; DOSE PER APP AND DAILY DOSE: 75 MG/M2 BODY SURFACE AREA
     Route: 042
     Dates: start: 20160311
  2. VARGATEF [Suspect]
     Active Substance: NINTEDANIB
     Indication: LUNG ADENOCARCINOMA
     Dosage: 400 MG
     Route: 048
     Dates: start: 20160312
  3. AMPHO-MORONAL [Concomitant]
     Active Substance: AMPHOTERICIN B
     Indication: ADVERSE EVENT
     Route: 048
     Dates: start: 20160407

REACTIONS (2)
  - Thrombotic thrombocytopenic purpura [Recovered/Resolved]
  - Sepsis [Recovered/Resolved]

NARRATIVE: CASE EVENT DATE: 20160407
